FAERS Safety Report 15264823 (Version 3)
Quarter: 2018Q4

REPORT INFORMATION
  Report Type: Spontaneous
  Country: US (occurrence: US)
  Receive Date: 20180810
  Receipt Date: 20181206
  Transmission Date: 20190204
  Serious: Yes (Hospitalization, Other)
  Sender: FDA-Public Use
  Company Number: PHEH2018US031660

PATIENT
  Age: 10 Year
  Sex: Female
  Weight: 26.4 kg

DRUGS (43)
  1. ALLOPURINOL. [Concomitant]
     Active Substance: ALLOPURINOL
     Indication: PROPHYLAXIS
     Dosage: UNK UNK, TID
     Route: 048
     Dates: start: 20180419, end: 20180424
  2. MICAFUNGIN. [Concomitant]
     Active Substance: MICAFUNGIN SODIUM
     Indication: FUNGAL INFECTION
     Dosage: UNK UNK, QD
     Route: 042
  3. MORPHINE [Concomitant]
     Active Substance: MORPHINE
     Dosage: UNK, Q4H,PRN
     Route: 042
     Dates: start: 20180515, end: 20180522
  4. ONDANSETRON [Concomitant]
     Active Substance: ONDANSETRON
     Indication: PROPHYLAXIS OF NAUSEA AND VOMITING
     Dosage: UNK UNK, Q8H
     Route: 042
     Dates: start: 20180419, end: 20180423
  5. PIPERACILLIN AND TAZOBACTAM [Concomitant]
     Active Substance: PIPERACILLIN SODIUM\TAZOBACTAM SODIUM
     Indication: BACTERIAL INFECTION
     Dosage: UNK UNK, Q8H
     Route: 042
     Dates: start: 20180420, end: 20180518
  6. VANCOMYCIN [Concomitant]
     Active Substance: VANCOMYCIN
     Dosage: UNK, TID
     Route: 048
     Dates: start: 20180527, end: 20180531
  7. KYMRIAH [Suspect]
     Active Substance: TISAGENLECLEUCEL
     Indication: ACUTE LYMPHOCYTIC LEUKAEMIA
     Dosage: UNK UNK, ONCE/SINGLE
     Route: 042
     Dates: start: 201807, end: 201808
  8. ACETAMINOPHEN. [Concomitant]
     Active Substance: ACETAMINOPHEN
     Indication: PYREXIA
     Dosage: UNK UNK, Q6H, PRN
     Route: 048
     Dates: start: 20180401, end: 20180518
  9. MORPHINE [Concomitant]
     Active Substance: MORPHINE
     Indication: PAIN
     Dosage: UNK UNK, Q6H, PRN
     Route: 042
     Dates: start: 20180420, end: 20180518
  10. TROPICAMIDE. [Concomitant]
     Active Substance: TROPICAMIDE
     Indication: PRODUCT USED FOR UNKNOWN INDICATION
     Dosage: UNK UNK,
     Route: 047
  11. LORAZEPAM. [Concomitant]
     Active Substance: LORAZEPAM
     Indication: PRODUCT USED FOR UNKNOWN INDICATION
     Dosage: UNK UNK, ONCE/SINGLE
     Route: 042
     Dates: start: 20180520, end: 20180520
  12. CEFEPIME [Concomitant]
     Active Substance: CEFEPIME HYDROCHLORIDE
     Dosage: UNK
     Route: 042
     Dates: start: 20180517, end: 20180528
  13. FILGRASTIM [Concomitant]
     Active Substance: FILGRASTIM
     Indication: NEUTROPENIA
     Dosage: UNK UNK, QD
     Route: 058
     Dates: start: 20180403, end: 20180408
  14. MELATONIN [Concomitant]
     Active Substance: MELATONIN
     Indication: SLEEP DISORDER
     Dosage: UNK UNK, QD
     Route: 048
     Dates: start: 20180327, end: 20180517
  15. MERCAPTOPURINE. [Concomitant]
     Active Substance: MERCAPTOPURINE
     Indication: CHEMOTHERAPY
     Dosage: UNK
     Route: 048
     Dates: start: 20180327, end: 20180329
  16. PHYTONADIONE. [Concomitant]
     Active Substance: PHYTONADIONE
     Dosage: UNK, QD
     Route: 048
     Dates: start: 20180514, end: 20180517
  17. SARGRAMOSTIM [Concomitant]
     Active Substance: SARGRAMOSTIM
     Indication: PRODUCT USED FOR UNKNOWN INDICATION
     Dosage: UNK UNK, QD
     Route: 058
     Dates: start: 20180406, end: 20180409
  18. RANITIDINE. [Concomitant]
     Active Substance: RANITIDINE
     Indication: PRODUCT USED FOR UNKNOWN INDICATION
     Dosage: UNK UNK, ONCE/SINGLE
     Route: 042
     Dates: start: 20180515, end: 20180531
  19. ACYCLOVIR. [Concomitant]
     Active Substance: ACYCLOVIR
     Indication: VIRAL INFECTION
     Dosage: UNK UNK, Q8H
     Route: 042
     Dates: start: 20180418, end: 20180419
  20. ALLOPURINOL. [Concomitant]
     Active Substance: ALLOPURINOL
     Dosage: UNK, TID
     Route: 048
     Dates: start: 20180515, end: 20180522
  21. CARMEX [Concomitant]
     Active Substance: CAMPHOR\MENTHOL\PHENOL\POTASSIUM ALUM\SALICYLIC ACID
     Indication: LIP DRY
     Dosage: UNK UNK, PRN
     Route: 061
     Dates: start: 20180421, end: 20180518
  22. OXYMETAZOLINE [Concomitant]
     Active Substance: OXYMETAZOLINE
     Indication: NASAL CONGESTION
     Dosage: UNK
     Route: 045
     Dates: start: 20180408, end: 20180417
  23. VANCOMYCIN [Concomitant]
     Active Substance: VANCOMYCIN
     Indication: BACTERIAL INFECTION
     Dosage: UNK UNK, Q8H
     Route: 042
     Dates: start: 20180410, end: 20180504
  24. HYDROMORPHONE [Concomitant]
     Active Substance: HYDROMORPHONE
     Indication: PAIN
     Dosage: UNK UNK, Q3H,PRN
     Route: 042
     Dates: start: 20180522, end: 20180531
  25. CYCLOPHOSPHAMIDE. [Concomitant]
     Active Substance: CYCLOPHOSPHAMIDE
     Indication: CHEMOTHERAPY
     Dosage: UNK UNK, QD
     Route: 042
     Dates: start: 20180419, end: 20180422
  26. ISRADIPINE. [Concomitant]
     Active Substance: ISRADIPINE
     Dosage: UNK
     Route: 048
     Dates: start: 20180524, end: 20180531
  27. PIPERACILLIN AND TAZOBACTAM [Concomitant]
     Active Substance: PIPERACILLIN SODIUM\TAZOBACTAM SODIUM
     Indication: PRODUCT USED FOR UNKNOWN INDICATION
     Dosage: UNK UNK, Q8H
     Route: 042
  28. ACETAMINOPHEN. [Concomitant]
     Active Substance: ACETAMINOPHEN
     Indication: PAIN
     Dosage: UNK, Q6H, PRN
     Route: 048
     Dates: start: 20180514, end: 20180531
  29. ISRADIPINE. [Concomitant]
     Active Substance: ISRADIPINE
     Indication: HYPERTENSION
     Dosage: UNK UNK, Q6H, PRN
     Route: 048
     Dates: start: 20180425, end: 20180518
  30. ONDANSETRON [Concomitant]
     Active Substance: ONDANSETRON
     Dosage: UNK
     Route: 042
     Dates: start: 20180514, end: 20180531
  31. GABAPENTIN. [Concomitant]
     Active Substance: GABAPENTIN
     Indication: NEURALGIA
     Dosage: UNK UNK, QD
     Route: 048
     Dates: start: 20180514, end: 20180514
  32. KEPPRA [Concomitant]
     Active Substance: LEVETIRACETAM
     Indication: SEIZURE
     Dosage: UNK UNK, BID
     Route: 042
     Dates: start: 20180520, end: 20180527
  33. FLUDARABINE [Concomitant]
     Active Substance: FLUDARABINE PHOSPHATE
     Indication: CHEMOTHERAPY
     Dosage: UNK UNK, QD
     Route: 042
     Dates: start: 20180419, end: 20180422
  34. VORICONAZOLE. [Concomitant]
     Active Substance: VORICONAZOLE
     Indication: FUNGAL INFECTION
     Dosage: UNK
     Dates: start: 20180405, end: 20180422
  35. LEVOFLOXACIN. [Concomitant]
     Active Substance: LEVOFLOXACIN
     Indication: BACTERIAL INFECTION
     Dosage: UNK UNK, QD
     Route: 048
     Dates: start: 20180530, end: 20180531
  36. CEFEPIME [Concomitant]
     Active Substance: CEFEPIME HYDROCHLORIDE
     Indication: BACTERIAL INFECTION
     Dosage: UNK UNK, Q8H
     Route: 042
     Dates: start: 20180327, end: 20180518
  37. DOCUSATE [Concomitant]
     Active Substance: DOCUSATE
     Dosage: UNK UNK, BID
     Route: 048
     Dates: start: 20180327, end: 20180424
  38. OXYCODONE [Concomitant]
     Active Substance: OXYCODONE
     Indication: PAIN
     Dosage: UNK UNK, Q6H, PRN
     Route: 048
     Dates: start: 20180327, end: 20180518
  39. PHYTONADIONE. [Concomitant]
     Active Substance: PHYTONADIONE
     Indication: VITAMIN K DEFICIENCY
     Dosage: UNK UNK, QD
     Route: 048
     Dates: start: 20180430, end: 20180507
  40. SENNA [Concomitant]
     Active Substance: SENNA LEAF\SENNOSIDES\SENNOSIDES A AND B
     Indication: CONSTIPATION
     Dosage: UNK UNK, QD
     Route: 048
     Dates: start: 20180327, end: 20180424
  41. VANCOMYCIN [Concomitant]
     Active Substance: VANCOMYCIN
     Dosage: UNK, Q6H
     Route: 042
     Dates: start: 20180518, end: 20180524
  42. SIMETHICONE (DIMETHICONE) [Concomitant]
     Active Substance: DIMETHICONE
     Indication: FLATULENCE
     Dosage: UNK UNK, Q6H,PRN
     Route: 048
     Dates: start: 20180519, end: 20180522
  43. TOCILIZUMAB. [Concomitant]
     Active Substance: TOCILIZUMAB
     Indication: PRODUCT USED FOR UNKNOWN INDICATION
     Dosage: UNK UNK, ONCE/SINGLE
     Route: 042
     Dates: start: 20180520, end: 20180521

REACTIONS (5)
  - Acute lymphocytic leukaemia recurrent [Not Recovered/Not Resolved]
  - Pyrexia [Unknown]
  - Malignant neoplasm progression [Not Recovered/Not Resolved]
  - Neutropenia [Unknown]
  - B-cell aplasia [Not Recovered/Not Resolved]

NARRATIVE: CASE EVENT DATE: 20180725
